FAERS Safety Report 17420314 (Version 1)
Quarter: 2020Q1

REPORT INFORMATION
  Report Type: Spontaneous
  Country: TR (occurrence: TR)
  Receive Date: 20200214
  Receipt Date: 20200214
  Transmission Date: 20200409
  Serious: Yes (Hospitalization)
  Sender: FDA-Public Use
  Company Number: TR-ZYLA LIFE SCIENCES-TR-2020EGA000076

PATIENT
  Age: 14 Year
  Sex: Female

DRUGS (3)
  1. INDOMETHACIN. [Suspect]
     Active Substance: INDOMETHACIN
     Indication: DYSMENORRHOEA
     Dosage: UNK
  2. METHYLPHENIDATE                    /00083802/ [Suspect]
     Active Substance: METHYLPHENIDATE
     Indication: ATTENTION DEFICIT/HYPERACTIVITY DISORDER
     Dosage: 27 MG, QD
  3. METHYLPHENIDATE                    /00083802/ [Suspect]
     Active Substance: METHYLPHENIDATE
     Dosage: 36 MG, QD

REACTIONS (2)
  - Hallucination, visual [Recovered/Resolved]
  - Drug interaction [Recovered/Resolved]
